FAERS Safety Report 8616160-2 (Version None)
Quarter: 2012Q3

REPORT INFORMATION
  Report Type: 
  Country: None (occurrence: None)
  Receive Date: 20120815
  Receipt Date: 20120815
  Transmission Date: 20120928
  Serious: Yes (Death)
  Sender: FDA-Public Use
  Company Number: None

PATIENT
  Age: 89 Year
  Sex: Female
  Weight: 56.6996 kg

DRUGS (7)
  1. CLINDAMYCIN [Concomitant]
  2. POLYMYCIN B SULFATE [Concomitant]
  3. DIGOXIN [Suspect]
     Dosage: 0.125MG Q 2 DAYS PO
     Route: 048
     Dates: start: 20120522, end: 20120527
  4. POTASSIUM CHLORIDE [Concomitant]
  5. PANTOPRAZOLE [Concomitant]
  6. CARVEDILOL [Concomitant]
  7. ALBUMIN (HUMAN) [Concomitant]

REACTIONS (4)
  - INAPPROPRIATE SCHEDULE OF DRUG ADMINISTRATION [None]
  - HYPOKALAEMIA [None]
  - CARDIAC ARREST [None]
  - BRADYCARDIA [None]
